FAERS Safety Report 9815788 (Version 3)
Quarter: 2014Q1

REPORT INFORMATION
  Report Type: Spontaneous
  Country: US (occurrence: None)
  Receive Date: 20140110
  Receipt Date: 20140122
  Transmission Date: 20141002
  Serious: Yes (Death, Hospitalization, Other)
  Sender: FDA-Public Use
  Company Number: KAD201401-000005

PATIENT
  Age: 69 Year
  Sex: Male
  Weight: 90.2 kg

DRUGS (21)
  1. RIBAVIRIN [Suspect]
     Indication: CHRONIC HEPATITIS C
     Dosage: TABLET, 600 MG DAILY (200 MG IN 7 AM AND 400 PM)
     Route: 048
     Dates: start: 20131107, end: 20131227
  2. SOFOSBUVIR/LEDIPASVIR [Suspect]
     Indication: CHRONIC HEPATITIS C
     Route: 048
     Dates: start: 20131107, end: 20131227
  3. MIRALAX [Suspect]
     Indication: CONSTIPATION
     Route: 048
     Dates: start: 20131223
  4. PRILOSEC [Suspect]
     Dosage: 20 MG/DAY
     Dates: start: 20130410
  5. HEPARIN [Suspect]
     Indication: THROMBOSIS PROPHYLAXIS
     Route: 058
  6. ZOFRAN [Suspect]
     Indication: NAUSEA
     Dosage: 4 MG, EVERY 4 HOURS, INTRAVENOUS
     Route: 042
     Dates: start: 20131227, end: 20131227
  7. SODIUM CHLORIDE [Suspect]
     Dosage: FLUID BOLUS
     Route: 040
  8. NORCO [Suspect]
     Indication: BACK PAIN
     Dosage: 2 TABLETS STOPPED
     Route: 048
  9. NORCO [Suspect]
     Indication: ABDOMINAL DISTENSION
     Dosage: 2 TABLETS STOPPED
     Route: 048
  10. NORCO [Suspect]
     Indication: CONSTIPATION
     Dosage: 2 TABLETS STOPPED
     Route: 048
  11. CELEBREX [Suspect]
     Dosage: 20 MG, DAILY
     Dates: start: 20130410, end: 20131002
  12. ASPIRIN (ACETYLSALICYLIC ACID) [Concomitant]
  13. VITAMIN D3 (CHOLECALCIFEROL) [Concomitant]
  14. VIAGRA (SILDENAFIL) [Concomitant]
  15. HYDROCODONE (HYDROCODONE) [Concomitant]
  16. AMBIEN (ZOLPIDEM TARTRATE) (5 MILLIGRAM) [Concomitant]
  17. FEXOFENADINE [Concomitant]
  18. VALTREX (VALACICLOVIR) [Concomitant]
  19. FAMOTIDINE (FAMOTIDINE) [Concomitant]
  20. PROGRAF (TACROLIMUS) [Concomitant]
  21. VITAMIN D (VITAMIN D) [Concomitant]

REACTIONS (45)
  - Aortic dissection [None]
  - Retching [None]
  - Abdominal pain [None]
  - Abdominal distension [None]
  - Renal failure acute [None]
  - Dehydration [None]
  - Feeling of body temperature change [None]
  - Dyspnoea [None]
  - Anxiety [None]
  - Constipation [None]
  - Frequent bowel movements [None]
  - Headache [None]
  - Vascular calcification [None]
  - Atrial flutter [None]
  - Atrial tachycardia [None]
  - Atrial fibrillation [None]
  - Bradycardia [None]
  - Leukocytosis [None]
  - Gastroenteritis viral [None]
  - Colitis [None]
  - Transaminases increased [None]
  - Insomnia [None]
  - Pulseless electrical activity [None]
  - Back pain [None]
  - Oral herpes [None]
  - Dyspepsia [None]
  - Diarrhoea [None]
  - Flatulence [None]
  - Hypophagia [None]
  - Spinal osteoarthritis [None]
  - Skin hyperpigmentation [None]
  - Thrombocytopenia [None]
  - Cardiac death [None]
  - Exostosis [None]
  - Nausea [None]
  - Scoliosis [None]
  - Atelectasis [None]
  - Pneumonitis [None]
  - Blood pressure systolic increased [None]
  - Conjunctival haemorrhage [None]
  - Blood alkaline phosphatase increased [None]
  - Blood bilirubin increased [None]
  - Blood glucose increased [None]
  - Feeling abnormal [None]
  - Aortic calcification [None]
